FAERS Safety Report 4482522-0 (Version None)
Quarter: 2004Q4

REPORT INFORMATION
  Report Type: 
  Country: None (occurrence: None)
  Receive Date: 20041022
  Receipt Date: 20040716
  Transmission Date: 20050328
  Serious: No
  Sender: FDA-Public Use
  Company Number: US-GLAXOSMITHKLINE-A0518617A

PATIENT

DRUGS (2)
  1. LEXIVA [Suspect]
     Indication: ILL-DEFINED DISORDER
     Route: 048
  2. COMBIVIR [Concomitant]

REACTIONS (2)
  - MUSCULAR WEAKNESS [None]
  - NEUROPATHIC PAIN [None]
